FAERS Safety Report 9252173 (Version 2)
Quarter: 2017Q4

REPORT INFORMATION
  Report Type: Spontaneous
  Country: IN (occurrence: IN)
  Receive Date: 20130424
  Receipt Date: 20171117
  Transmission Date: 20180321
  Serious: Yes (Death, Other)
  Sender: FDA-Public Use
  Company Number: PHHY2013IN038999

PATIENT
  Sex: Male
  Weight: .32 kg

DRUGS (1)
  1. METFORMIN [Suspect]
     Active Substance: METFORMIN HYDROCHLORIDE
     Indication: FOETAL EXPOSURE DURING PREGNANCY
     Dosage: UNK
     Route: 064

REACTIONS (20)
  - Bladder disorder [Unknown]
  - Low birth weight baby [Unknown]
  - Renal malposition [Unknown]
  - Abdominal wall disorder [Unknown]
  - Urogenital disorder [Unknown]
  - Clinodactyly [Unknown]
  - Foetal growth restriction [Unknown]
  - Sacral hypoplasia [Unknown]
  - Spinal disorder [Unknown]
  - Ureteral disorder [Unknown]
  - Foetal exposure during pregnancy [Unknown]
  - Lip disorder [Unknown]
  - Talipes [Unknown]
  - Anal atresia [Unknown]
  - Genital disorder male [Unknown]
  - Umbilical cord cyst [Unknown]
  - Foetal death [Fatal]
  - Vitello-intestinal duct remnant [Unknown]
  - Urinary bladder rupture [Unknown]
  - Short-bowel syndrome [Unknown]
